FAERS Safety Report 8272545-8 (Version None)
Quarter: 2012Q2

REPORT INFORMATION
  Report Type: 
  Country: None (occurrence: None)
  Receive Date: 20120410
  Receipt Date: 20120329
  Transmission Date: 20120825
  Serious: Yes (Hospitalization)
  Sender: FDA-Public Use
  Company Number: JP-ROCHE-GNE324614

PATIENT
  Sex: Male
  Weight: 53.073 kg

DRUGS (4)
  1. RANIBIZUMAB [Suspect]
     Route: 050
     Dates: start: 20111215
  2. RANIBIZUMAB [Suspect]
     Indication: AGE-RELATED MACULAR DEGENERATION
     Route: 050
     Dates: start: 20110728
  3. GATIFLOXACIN [Concomitant]
     Dates: start: 20110701, end: 20110801
  4. RANIBIZUMAB [Suspect]
     Route: 050
     Dates: start: 20110825

REACTIONS (1)
  - RETINAL HAEMORRHAGE [None]
